FAERS Safety Report 5926691-1 (Version None)
Quarter: 2008Q4

REPORT INFORMATION
  Report Type: 
  Country: None (occurrence: None)
  Receive Date: 20081022
  Receipt Date: 20081015
  Transmission Date: 20090506
  Serious: Yes (Other)
  Sender: FDA-Public Use
  Company Number: US-BAYER-200418732BWH

PATIENT
  Age: 24 Year
  Sex: Female
  Weight: 75 kg

DRUGS (2)
  1. CIPRO [Suspect]
     Indication: CHEST PAIN
     Route: 048
     Dates: start: 19940511, end: 19940601
  2. NORPLANT [Concomitant]
     Route: 059

REACTIONS (7)
  - ARTHRALGIA [None]
  - DIZZINESS [None]
  - DYSGEUSIA [None]
  - HEADACHE [None]
  - JOINT INSTABILITY [None]
  - OSTEOARTHRITIS [None]
  - TIBIA FRACTURE [None]
